FAERS Safety Report 9551452 (Version 1)
Quarter: 2013Q3

REPORT INFORMATION
  Report Type: Spontaneous
  Country: US (occurrence: None)
  Receive Date: 20130724
  Receipt Date: 20130724
  Transmission Date: 20140515
  Serious: Yes (Other)
  Sender: FDA-Public Use
  Company Number: PHEH2012US011505

PATIENT
  Sex: Female

DRUGS (1)
  1. GLEEVEC [Suspect]
     Indication: CHRONIC MYELOID LEUKAEMIA

REACTIONS (8)
  - Fluid retention [None]
  - Cardiac failure congestive [None]
  - Skin exfoliation [None]
  - Abasia [None]
  - Pain in extremity [None]
  - Rash pruritic [None]
  - Oedema peripheral [None]
  - Skin fissures [None]
